FAERS Safety Report 13321916 (Version 1)
Quarter: 2017Q1

REPORT INFORMATION
  Report Type: Spontaneous
  Country: US (occurrence: US)
  Receive Date: 20170310
  Receipt Date: 20170310
  Transmission Date: 20170428
  Serious: Yes (Hospitalization)
  Sender: FDA-Public Use
  Company Number: None

PATIENT
  Age: 64 Year
  Sex: Male

DRUGS (1)
  1. WARFARIN [Suspect]
     Active Substance: WARFARIN
     Indication: DEEP VEIN THROMBOSIS
     Dosage: 5 MG PM PO
     Route: 048
     Dates: start: 20110526, end: 20110529

REACTIONS (4)
  - Retroperitoneal haemorrhage [None]
  - Back pain [None]
  - International normalised ratio increased [None]
  - Haemoglobin decreased [None]

NARRATIVE: CASE EVENT DATE: 20110529
